FAERS Safety Report 13634835 (Version 1)
Quarter: 2017Q2

REPORT INFORMATION
  Report Type: Spontaneous
  Country: US (occurrence: US)
  Receive Date: 20170531
  Receipt Date: 20170531
  Transmission Date: 20170830
  Serious: No
  Sender: FDA-Public Use
  Company Number: US-ASTELLAS-1660720

PATIENT
  Sex: Female

DRUGS (3)
  1. ATENOLOL. [Concomitant]
     Active Substance: ATENOLOL
  2. AMLODIPINE [Concomitant]
     Active Substance: AMLODIPINE BESYLATE
  3. TARCEVA [Suspect]
     Active Substance: ERLOTINIB HYDROCHLORIDE
     Indication: LUNG NEOPLASM MALIGNANT
     Route: 048
     Dates: start: 20151020

REACTIONS (8)
  - Rash [Unknown]
  - Alopecia [Unknown]
  - Dysgeusia [Unknown]
  - Haemorrhage [Unknown]
  - Nail disorder [Unknown]
  - Onychoclasis [Unknown]
  - Diarrhoea [Unknown]
  - Skin fissures [Unknown]
